FAERS Safety Report 6216611-7 (Version None)
Quarter: 2009Q2

REPORT INFORMATION
  Report Type: 
  Country: None (occurrence: None)
  Receive Date: 20090605
  Receipt Date: 20090603
  Transmission Date: 20091009
  Serious: Yes (Death)
  Sender: FDA-Public Use
  Company Number: PHHY2009IL21785

PATIENT

DRUGS (1)
  1. TASIGNA [Suspect]

REACTIONS (1)
  - SUDDEN DEATH [None]
